FAERS Safety Report 4966925-3 (Version None)
Quarter: 2006Q2

REPORT INFORMATION
  Report Type: 
  Country: None (occurrence: None)
  Receive Date: 20060407
  Receipt Date: 20060330
  Transmission Date: 20061013
  Serious: Yes (Life-Threatening, Hospitalization, Disabling)
  Sender: FDA-Public Use
  Company Number: US-MERCK-0603USA04619

PATIENT
  Age: 59 Year
  Sex: Male

DRUGS (6)
  1. ZOCOR [Suspect]
     Indication: HYPERLIPIDAEMIA
     Route: 048
     Dates: start: 20041101, end: 20051107
  2. ZOCOR [Suspect]
     Route: 048
  3. COUMADIN [Concomitant]
     Route: 065
  4. IRON (UNSPECIFIED) [Concomitant]
     Route: 065
  5. COZAAR [Concomitant]
     Route: 065
  6. DIGOXIN [Concomitant]
     Route: 065

REACTIONS (5)
  - ATRIAL FIBRILLATION [None]
  - CONVULSION [None]
  - DILATATION ATRIAL [None]
  - INAPPROPRIATE SCHEDULE OF DRUG ADMINISTRATION [None]
  - LOSS OF CONSCIOUSNESS [None]
